FAERS Safety Report 5870575-4 (Version None)
Quarter: 2008Q3

REPORT INFORMATION
  Report Type: 
  Country: None (occurrence: None)
  Receive Date: 20080904
  Receipt Date: 20080827
  Transmission Date: 20090109
  Serious: Yes (Hospitalization)
  Sender: FDA-Public Use
  Company Number: A0733752A

PATIENT
  Age: 71 Year
  Sex: Female
  Weight: 73.6 kg

DRUGS (7)
  1. TOPOTECAN [Suspect]
     Indication: MALIGNANT GLIOMA
     Dosage: .2MGML CONTINUOUS
     Dates: start: 20071211, end: 20071214
  2. LEXAPRO [Concomitant]
     Dosage: 10MG PER DAY
  3. HYZAAR [Concomitant]
  4. NORVASC [Concomitant]
     Dosage: 10MG PER DAY
  5. KEPPRA [Concomitant]
  6. ATIVAN [Concomitant]
     Dosage: .5MG AS REQUIRED
  7. DAPSONE [Concomitant]
     Dosage: 100MG PER DAY

REACTIONS (3)
  - CEREBELLAR SYNDROME [None]
  - DISORIENTATION [None]
  - ILL-DEFINED DISORDER [None]
